FAERS Safety Report 19260127 (Version 6)
Quarter: 2021Q2

REPORT INFORMATION
  Report Type: Report from Study
  Country: BE (occurrence: BE)
  Receive Date: 20210514
  Receipt Date: 20210621
  Transmission Date: 20210717
  Serious: Yes (Hospitalization, Other)
  Sender: FDA-Public Use
  Company Number: BE-REGENERON PHARMACEUTICALS, INC.-2021-49321

PATIENT

DRUGS (15)
  1. PROGYNOVA                          /00045401/ [Concomitant]
     Active Substance: ESTRADIOL VALERATE
     Indication: PRODUCT USED FOR UNKNOWN INDICATION
     Dosage: TOTAL DAILY DOSE: 2 MG
     Route: 048
  2. ACETYLCYSTEINE. [Concomitant]
     Active Substance: ACETYLCYSTEINE
     Indication: PRODUCT USED FOR UNKNOWN INDICATION
     Dosage: TOTAL DAILY DOSE: 600 MG
     Route: 048
  3. LEVOCETIRIZINE [Concomitant]
     Active Substance: LEVOCETIRIZINE
     Indication: PRODUCT USED FOR UNKNOWN INDICATION
     Dosage: 5 MG, 1X
     Route: 048
     Dates: start: 20210429
  4. PARACETAMOL [Concomitant]
     Active Substance: ACETAMINOPHEN
     Indication: PRODUCT USED FOR UNKNOWN INDICATION
     Dosage: TOTAL DAILY DOSE: 1000 MG
     Route: 048
  5. METHYLPREDNISOLONE. [Concomitant]
     Active Substance: METHYLPREDNISOLONE
     Indication: PRODUCT USED FOR UNKNOWN INDICATION
     Dosage: TOTAL DAILY DOSE: 64 MG
     Route: 048
     Dates: start: 20210415, end: 20210422
  6. MERIDOL                            /09575101/ [Concomitant]
     Indication: PRODUCT USED FOR UNKNOWN INDICATION
     Dosage: TOTAL DAILY DOSE: 3 OTHER
     Route: 002
     Dates: start: 20210226
  7. CEMIPLIMAB [Suspect]
     Active Substance: CEMIPLIMAB
     Indication: HEPATOCELLULAR CARCINOMA
     Dosage: 350 MG, Q3W
     Route: 042
     Dates: start: 20210218, end: 20210218
  8. CEMIPLIMAB [Suspect]
     Active Substance: CEMIPLIMAB
     Dosage: 350 MG, Q3W
     Route: 042
     Dates: start: 20210429, end: 20210429
  9. SAR439459 [Suspect]
     Active Substance: SAR-439459
     Indication: HEPATOCELLULAR CARCINOMA
     Dosage: UNK UNK, Q3W
     Route: 042
     Dates: start: 20210218, end: 20210218
  10. PANTOPRAZOLE [Concomitant]
     Active Substance: PANTOPRAZOLE
     Indication: PROPHYLAXIS
     Dosage: TOTAL DAILY DOSE: 40 MG
     Route: 048
     Dates: start: 20210415, end: 20210422
  11. VALACICLOVIR [Concomitant]
     Active Substance: VALACYCLOVIR HYDROCHLORIDE
     Indication: PRODUCT USED FOR UNKNOWN INDICATION
     Dosage: TOTAL DAILY DOSE: 1000 MG
     Dates: start: 20210422, end: 20210429
  12. SAR439459 [Suspect]
     Active Substance: SAR-439459
     Dosage: 22.5 MG/KG, Q3W
     Route: 042
     Dates: start: 20210429, end: 20210429
  13. ZOLPIDEM [Concomitant]
     Active Substance: ZOLPIDEM TARTRATE
     Indication: PRODUCT USED FOR UNKNOWN INDICATION
     Dosage: TOTAL DAILY DOSE: 5 MG
     Route: 048
  14. MOMETASONE [Concomitant]
     Active Substance: MOMETASONE
     Indication: PRODUCT USED FOR UNKNOWN INDICATION
     Dosage: TOTAL DAILY DOSE: 50 UG
     Route: 045
     Dates: start: 20210329
  15. CICALFATE [Concomitant]
     Indication: PRODUCT USED FOR UNKNOWN INDICATION
     Dosage: TOTAL DAILY DOSE: 1 APPLICATION UNIT
     Route: 061
     Dates: start: 20210316

REACTIONS (3)
  - Squamous cell carcinoma of skin [Not Recovered/Not Resolved]
  - Adrenal insufficiency [Not Recovered/Not Resolved]
  - Lip squamous cell carcinoma [Not Recovered/Not Resolved]

NARRATIVE: CASE EVENT DATE: 20210504
